FAERS Safety Report 13340302 (Version 1)
Quarter: 2017Q1

REPORT INFORMATION
  Report Type: Spontaneous
  Country: US (occurrence: US)
  Receive Date: 20170316
  Receipt Date: 20170316
  Transmission Date: 20170428
  Serious: No
  Sender: FDA-Public Use
  Company Number: US-AUROBINDO-AUR-APL-2016-07666

PATIENT
  Sex: Female
  Weight: 69.84 kg

DRUGS (1)
  1. CEFADROXIL CAPSULES USP 500 MG [Suspect]
     Active Substance: CEFADROXIL
     Indication: SKIN INFECTION
     Dosage: 500 MG, TWO TIMES A DAY
     Route: 048

REACTIONS (4)
  - Burning sensation [Not Recovered/Not Resolved]
  - Musculoskeletal stiffness [Not Recovered/Not Resolved]
  - Condition aggravated [Not Recovered/Not Resolved]
  - Pain in extremity [Not Recovered/Not Resolved]
